FAERS Safety Report 9671686 (Version 1)
Quarter: 2013Q4

REPORT INFORMATION
  Report Type: Spontaneous
  Country: US (occurrence: US)
  Receive Date: 20131106
  Receipt Date: 20131106
  Transmission Date: 20140711
  Serious: Yes (Hospitalization)
  Sender: FDA-Public Use
  Company Number: PHHY2013US122583

PATIENT
  Age: 51 Year
  Sex: Female

DRUGS (2)
  1. HYDROXYCHLOROQUINE [Suspect]
     Dosage: 60 DF, UNK
  2. OXYCODONE+PARACETAMOL [Suspect]
     Dosage: 35 DF, UNK

REACTIONS (5)
  - Ventricular fibrillation [Recovered/Resolved]
  - Hypotension [Recovering/Resolving]
  - Cardiac arrest [Recovered/Resolved]
  - Somnolence [Unknown]
  - Overdose [Unknown]
